FAERS Safety Report 14531229 (Version 1)
Quarter: 2018Q1

REPORT INFORMATION
  Report Type: Spontaneous
  Country: US (occurrence: US)
  Receive Date: 20180214
  Receipt Date: 20180214
  Transmission Date: 20180509
  Serious: Yes (Hospitalization)
  Sender: FDA-Public Use
  Company Number: US-JNJFOC-20180216534

PATIENT
  Age: 54 Year
  Sex: Male

DRUGS (2)
  1. METFORMIN [Suspect]
     Active Substance: METFORMIN HYDROCHLORIDE
     Indication: DIABETES MELLITUS
     Dosage: TAKE 1 TABLET (1,000 MG TOTAL) BY MOUTH 2 (TWO) TIMES A DAY??WITH MEALS
     Route: 048
  2. INVOKANA [Suspect]
     Active Substance: CANAGLIFLOZIN
     Indication: TYPE 2 DIABETES MELLITUS
     Dosage: 100 AND 300 MG
     Route: 048
     Dates: start: 20151222

REACTIONS (4)
  - Arthritis bacterial [Recovering/Resolving]
  - Cellulitis [Recovering/Resolving]
  - Osteomyelitis [Recovering/Resolving]
  - Foot amputation [Unknown]

NARRATIVE: CASE EVENT DATE: 20170613
